FAERS Safety Report 5006308-3 (Version None)
Quarter: 2006Q2

REPORT INFORMATION
  Report Type: 
  Country: None (occurrence: None)
  Receive Date: 20060517
  Receipt Date: 20060517
  Transmission Date: 20061013
  Serious: Yes (Hospitalization)
  Sender: FDA-Public Use
  Company Number: None

PATIENT
  Sex: Male

DRUGS (19)
  1. LITHIUM  300 MG [Suspect]
     Indication: DRUG THERAPY
     Dosage: 300 MG/ 600 MG  AM/HS  PO
     Route: 048
  2. APAP TAB [Concomitant]
  3. ACETAZOLAMIDE [Concomitant]
  4. BENZTROPINE MESYLATE [Concomitant]
  5. BRIMONIDINE TARTRATE [Concomitant]
  6. CYANOCOBALAMIN [Concomitant]
  7. FLUDROCORTISONE [Concomitant]
  8. FLURBIPROFEN [Concomitant]
  9. FOLIC ACID [Concomitant]
  10. GATIFLOXACIN OPHTHALMIC [Concomitant]
  11. HALOPERIDOL [Concomitant]
  12. INSULIN [Concomitant]
  13. LEVOTHYROXINE SODIUM [Concomitant]
  14. MULTIVITAMIN WITH MINERALS [Concomitant]
  15. PIPERACILLIN AND TAZOBACTAM [Concomitant]
  16. PREDNISOLONE OPHTHALMIC [Concomitant]
  17. SERTRALINE HCL [Concomitant]
  18. THIAMINE [Concomitant]
  19. VIT E [Concomitant]

REACTIONS (3)
  - ELECTROLYTE IMBALANCE [None]
  - MENTAL STATUS CHANGES [None]
  - NEPHROGENIC DIABETES INSIPIDUS [None]
